FAERS Safety Report 20336555 (Version 1)
Quarter: 2022Q1

REPORT INFORMATION
  Report Type: Spontaneous
  Country: US (occurrence: None)
  Receive Date: 20220114
  Receipt Date: 20220114
  Transmission Date: 20220424
  Serious: Yes (Death)
  Sender: FDA-Public Use
  Company Number: None

PATIENT
  Age: 68 Year
  Sex: Female

DRUGS (1)
  1. RAPAMUNE [Suspect]
     Active Substance: SIROLIMUS
     Indication: Renal transplant
     Dosage: 3MG DAILY ORAL?
     Route: 048
     Dates: start: 20210615, end: 20211228

REACTIONS (1)
  - Death [None]

NARRATIVE: CASE EVENT DATE: 20220114
